FAERS Safety Report 6944767-7 (Version None)
Quarter: 2010Q3

REPORT INFORMATION
  Report Type: 
  Country: None (occurrence: None)
  Receive Date: 20100827
  Receipt Date: 20100817
  Transmission Date: 20110219
  Serious: Yes (Hospitalization, Other)
  Sender: FDA-Public Use
  Company Number: US-BAYER-201020043NA

PATIENT
  Age: 28 Year
  Sex: Female
  Weight: 86 kg

DRUGS (3)
  1. MIRENA [Suspect]
     Indication: CONTRACEPTION
     Dosage: FREQUENCY: CONTINUOUS
     Route: 015
     Dates: start: 20080904, end: 20100330
  2. PRENATAL VITAMINS [Concomitant]
  3. AMOXICILLIN [Concomitant]
     Indication: URINARY TRACT INFECTION

REACTIONS (2)
  - ABDOMINAL PAIN [None]
  - DEVICE DISLOCATION [None]
